FAERS Safety Report 4275727-5 (Version None)
Quarter: 2004Q1

REPORT INFORMATION
  Report Type: 
  Country: None (occurrence: None)
  Receive Date: 20040121
  Receipt Date: 20031211
  Transmission Date: 20041129
  Serious: Yes (Other)
  Sender: FDA-Public Use
  Company Number: PHBS2003JP14086

PATIENT
  Age: 82 Year
  Sex: Female
  Weight: 53 kg

DRUGS (3)
  1. LOCHOL [Suspect]
     Indication: HYPERCHOLESTEROLAEMIA
     Dosage: 30 MG, QD
     Route: 048
     Dates: start: 20030924, end: 20031006
  2. LOPRESSOR [Suspect]
     Route: 048
  3. NORVASC [Suspect]
     Dosage: UNK, UNK
     Route: 048

REACTIONS (1)
  - RECTAL HAEMORRHAGE [None]
